FAERS Safety Report 10029808 (Version 2)
Quarter: 2014Q3

REPORT INFORMATION
  Report Type: Spontaneous
  Country: IT (occurrence: IT)
  Receive Date: 20140322
  Receipt Date: 20140710
  Transmission Date: 20150326
  Serious: Yes (Hospitalization)
  Sender: FDA-Public Use
  Company Number: IT-009507513-1403ITA006932

PATIENT
  Age: 50 Year
  Sex: Male

DRUGS (4)
  1. MIRTAZAPINE. [Suspect]
     Active Substance: MIRTAZAPINE
     Indication: INTENTIONAL SELF-INJURY
     Dosage: 20 DF, TOTAL, INDICATION -SELF HARM
     Route: 048
     Dates: start: 20140309, end: 20140309
  2. EN [Suspect]
     Active Substance: DELORAZEPAM
     Indication: INTENTIONAL SELF-INJURY
     Dosage: 20 ML, TOTAL, 1MG/ML,  FORMULATION- ORAL DROPS, INDICATION-INTENTIONAL SELF HARM
     Route: 048
     Dates: start: 20140309, end: 20140309
  3. MIRTAZAPINE. [Suspect]
     Active Substance: MIRTAZAPINE
     Dosage: UNK
     Route: 048
     Dates: start: 1997
  4. EN [Suspect]
     Active Substance: DELORAZEPAM
     Dosage: UNK
     Route: 048
     Dates: start: 1997

REACTIONS (3)
  - Sopor [Recovered/Resolved]
  - Bradykinesia [Recovered/Resolved]
  - Intentional self-injury [Recovered/Resolved]

NARRATIVE: CASE EVENT DATE: 20140309
